FAERS Safety Report 6681469 (Version 7)
Quarter: 2013Q2

REPORT INFORMATION
  Report Type: Spontaneous
  Country: BR (occurrence: None)
  Receive Date: 20080613
  Receipt Date: 20130401
  Transmission Date: 20140414
  Serious: Yes (Life-Threatening, Other)
  Sender: FDA-Public Use
  Company Number: CERZ-1000246

PATIENT
  Age: 10 Year
  Sex: Male
  Weight: 24.2 kg

DRUGS (5)
  1. CEREZYME [Suspect]
     Indication: GAUCHER^S DISEASE
     Dosage: 60 U/KG, Q2W, INTRAVENOUS; 60 U/KG, INTRAVENOUS
     Route: 042
     Dates: start: 1999, end: 20080519
  2. LORATIDINE [Concomitant]
  3. TALIGLUCERASE ALFA [Concomitant]
  4. RANITIDINE (RANITIDINE) [Concomitant]
  5. HYDROCORTISONE (HYDROCORTISONE) [Concomitant]

REACTIONS (10)
  - Stridor [None]
  - Periorbital oedema [None]
  - Eyelid oedema [None]
  - Increased bronchial secretion [None]
  - Vomiting [None]
  - Cough [None]
  - Infusion related reaction [None]
  - Catheter site erythema [None]
  - Tachypnoea [None]
  - Anaphylactoid reaction [None]
